FAERS Safety Report 11088888 (Version 2)
Quarter: 2016Q1

REPORT INFORMATION
  Report Type: Report from Study
  Country: US (occurrence: US)
  Receive Date: 20150504
  Receipt Date: 20160115
  Transmission Date: 20160525
  Serious: Yes (Other)
  Sender: FDA-Public Use
  Company Number: US-BIOMARINAP-US-2014-104432

PATIENT
  Sex: Female

DRUGS (2)
  1. ALDURAZYME [Suspect]
     Active Substance: LARONIDASE
     Indication: MUCOPOLYSACCHARIDOSIS I
     Dosage: 0.58 MG, QW
     Route: 042
     Dates: start: 20140811
  2. ALDURAZYME [Suspect]
     Active Substance: LARONIDASE
     Dosage: 0.58 MG, QW
     Route: 042

REACTIONS (2)
  - Central venous catheterisation [Recovering/Resolving]
  - Gastrointestinal infection [Recovered/Resolved]
